FAERS Safety Report 4380620-3 (Version None)
Quarter: 2004Q2

REPORT INFORMATION
  Report Type: 
  Country: None (occurrence: None)
  Receive Date: 20040618
  Receipt Date: 20040609
  Transmission Date: 20050107
  Serious: Yes (Other)
  Sender: FDA-Public Use
  Company Number: ES-GLAXOSMITHKLINE-B0335716A

PATIENT
  Sex: Male

DRUGS (3)
  1. ZYNTABAC [Suspect]
     Dosage: 300MG PER DAY
     Route: 048
  2. SERTRALINE HCL [Concomitant]
  3. ANTIDEPRESSANTS [Concomitant]

REACTIONS (4)
  - AGGRESSION [None]
  - CONFUSIONAL STATE [None]
  - DISORIENTATION [None]
  - IRRITABILITY [None]
